FAERS Safety Report 4977554-X (Version None)
Quarter: 2006Q2

REPORT INFORMATION
  Report Type: 
  Country: None (occurrence: None)
  Receive Date: 20060420
  Receipt Date: 20060410
  Transmission Date: 20061013
  Serious: Yes (Other)
  Sender: FDA-Public Use
  Company Number: US-JNJFOC-20060403027

PATIENT
  Sex: Male
  Weight: 90.72 kg

DRUGS (3)
  1. DURAGESIC-100 [Suspect]
     Route: 062
  2. AMBIEN [Concomitant]
     Indication: SLEEP DISORDER
     Dosage: 1 AT BEDTIME
     Route: 048
  3. VALIUM [Concomitant]
     Route: 048

REACTIONS (3)
  - APPLICATION SITE ERYTHEMA [None]
  - APPLICATION SITE IRRITATION [None]
  - BLOOD GLUCOSE INCREASED [None]
